FAERS Safety Report 14038707 (Version 4)
Quarter: 2018Q4

REPORT INFORMATION
  Report Type: Report from Study
  Country: US (occurrence: US)
  Receive Date: 20171004
  Receipt Date: 20181102
  Transmission Date: 20190204
  Serious: Yes (Hospitalization, Other)
  Sender: FDA-Public Use
  Company Number: US-AMGEN-USASL2017147631

PATIENT
  Age: 67 Year
  Sex: Female

DRUGS (2)
  1. REPATHA [Suspect]
     Active Substance: EVOLOCUMAB
     Indication: HYPERCHOLESTEROLAEMIA
     Dosage: UNK
     Route: 065
     Dates: start: 201611, end: 2017
  2. REPATHA [Suspect]
     Active Substance: EVOLOCUMAB
     Dosage: 140 MG, Q2WK
     Route: 058
     Dates: start: 2017

REACTIONS (16)
  - Alopecia [Unknown]
  - Myalgia [Unknown]
  - Pain in extremity [Unknown]
  - Injection site bruising [Unknown]
  - Rash erythematous [Recovered/Resolved]
  - Peripheral swelling [Unknown]
  - Abdominal pain upper [Unknown]
  - Back pain [Not Recovered/Not Resolved]
  - Feeling abnormal [Unknown]
  - Rash pruritic [Recovered/Resolved]
  - Influenza like illness [Unknown]
  - Vision blurred [Unknown]
  - Sinusitis fungal [Not Recovered/Not Resolved]
  - Migraine [Unknown]
  - Injection site erythema [Unknown]
  - Injection site pain [Unknown]

NARRATIVE: CASE EVENT DATE: 2017
